FAERS Safety Report 5687652-3 (Version None)
Quarter: 2008Q1

REPORT INFORMATION
  Report Type: 
  Country: None (occurrence: None)
  Receive Date: 20080328
  Receipt Date: 20080314
  Transmission Date: 20080703
  Serious: Yes (Hospitalization)
  Sender: FDA-Public Use
  Company Number: FR-BAYER-200815065GPV

PATIENT
  Age: 48 Year
  Sex: Female

DRUGS (4)
  1. MIRENA [Suspect]
     Indication: DRUG USE FOR UNKNOWN INDICATION
     Dosage: TOTAL DAILY DOSE: 20 ?G/D
     Route: 015
     Dates: start: 20020101, end: 20071101
  2. MIRENA [Suspect]
     Dosage: TOTAL DAILY DOSE: 20 ?G/D
     Route: 015
     Dates: start: 20071101, end: 20080201
  3. SEROPLEX [Concomitant]
     Indication: DRUG USE FOR UNKNOWN INDICATION
     Route: 048
  4. IMOVAN [Concomitant]
     Indication: DRUG USE FOR UNKNOWN INDICATION
     Route: 048

REACTIONS (1)
  - PELVIC VENOUS THROMBOSIS [None]
